FAERS Safety Report 6386180-X (Version None)
Quarter: 2009Q4

REPORT INFORMATION
  Report Type: 
  Country: None (occurrence: None)
  Receive Date: 20091002
  Receipt Date: 20090106
  Transmission Date: 20100525
  Serious: Yes (Other)
  Sender: FDA-Public Use
  Company Number: US-ASTRAZENECA-2008UW27189

PATIENT
  Age: 70 Year
  Sex: Female
  Weight: 69.9 kg

DRUGS (2)
  1. ARIMIDEX [Suspect]
     Indication: BREAST CANCER FEMALE
     Route: 048
     Dates: start: 20081101
  2. CALCIUM CITRATE W/ VITAMIN D NOS [Concomitant]
     Dosage: TWICE A DAY

REACTIONS (7)
  - ARTHRALGIA [None]
  - CALCINOSIS [None]
  - FRACTURE [None]
  - JOINT INJURY [None]
  - JOINT SWELLING [None]
  - MUSCLE STRAIN [None]
  - OSTEOARTHRITIS [None]
